FAERS Safety Report 6709153-3 (Version None)
Quarter: 2010Q2

REPORT INFORMATION
  Report Type: 
  Country: None (occurrence: None)
  Receive Date: 20100503
  Receipt Date: 20100503
  Transmission Date: 20101027
  Serious: Yes (Other)
  Sender: FDA-Public Use
  Company Number: None

PATIENT
  Age: 82 Year
  Sex: Male
  Weight: 102.0593 kg

DRUGS (5)
  1. PACLITAXEL [Suspect]
     Indication: LUNG NEOPLASM MALIGNANT
     Dosage: 114 MG WEEKLY IV DRIP 1ST DOSE
     Route: 041
     Dates: start: 20100429, end: 20100429
  2. ALOXI [Concomitant]
  3. DIPHENHYDRAMINE [Concomitant]
  4. FAMOTIDINE [Concomitant]
  5. DEXAMETHASONE [Concomitant]

REACTIONS (4)
  - GRAND MAL CONVULSION [None]
  - INFUSION RELATED REACTION [None]
  - LOSS OF CONSCIOUSNESS [None]
  - RESPIRATORY ARREST [None]
